FAERS Safety Report 11685059 (Version 7)
Quarter: 2018Q1

REPORT INFORMATION
  Report Type: Report from Study
  Country: US (occurrence: US)
  Receive Date: 20151030
  Receipt Date: 20180127
  Transmission Date: 20180508
  Serious: No
  Sender: FDA-Public Use
  Company Number: PHHY2015US099045

PATIENT
  Age: 31 Year
  Sex: Female

DRUGS (1)
  1. GILENYA [Suspect]
     Active Substance: FINGOLIMOD HYDROCHLORIDE
     Indication: MULTIPLE SCLEROSIS
     Dosage: UNK, QD
     Route: 048

REACTIONS (9)
  - Dizziness [Recovered/Resolved]
  - Trigger finger [Recovered/Resolved]
  - Hypoaesthesia [Not Recovered/Not Resolved]
  - Vertigo [Recovered/Resolved]
  - Headache [Not Recovered/Not Resolved]
  - Blood alkaline phosphatase decreased [Unknown]
  - Lymphocyte count decreased [Unknown]
  - Muscle twitching [Recovered/Resolved]
  - Coordination abnormal [Not Recovered/Not Resolved]

NARRATIVE: CASE EVENT DATE: 20150625
